FAERS Safety Report 9601358 (Version 8)
Quarter: 2016Q1

REPORT INFORMATION
  Report Type: Report from Study
  Country: CA (occurrence: CA)
  Receive Date: 20131007
  Receipt Date: 20160203
  Transmission Date: 20160526
  Serious: Yes (Life-Threatening, Hospitalization, Other)
  Sender: FDA-Public Use
  Company Number: CA-ROCHE-1177733

PATIENT
  Age: 63 Year
  Sex: Female
  Weight: 65 kg

DRUGS (14)
  1. SODIUM PHENYLBUTYRATE. [Concomitant]
     Active Substance: SODIUM PHENYLBUTYRATE
  2. AVASTIN [Suspect]
     Active Substance: BEVACIZUMAB
     Route: 042
     Dates: start: 20120813
  3. AVASTIN [Suspect]
     Active Substance: BEVACIZUMAB
     Route: 042
     Dates: start: 20130207
  4. METFORMIN [Concomitant]
     Active Substance: METFORMIN HYDROCHLORIDE
     Indication: DIABETES MELLITUS
     Route: 048
  5. BISOPROLOL [Concomitant]
     Active Substance: BISOPROLOL
  6. VOTRIENT [Concomitant]
     Active Substance: PAZOPANIB HYDROCHLORIDE
  7. RANITIDINE [Concomitant]
     Active Substance: RANITIDINE\RANITIDINE HYDROCHLORIDE
  8. CCNU [Concomitant]
     Active Substance: LOMUSTINE
     Indication: NEOPLASM PROGRESSION
     Route: 048
     Dates: start: 20130925
  9. AVASTIN [Suspect]
     Active Substance: BEVACIZUMAB
     Route: 042
     Dates: start: 20130603
  10. AVASTIN [Suspect]
     Active Substance: BEVACIZUMAB
     Route: 042
     Dates: start: 20130925
  11. LOVENOX [Concomitant]
     Active Substance: ENOXAPARIN SODIUM
  12. AVASTIN [Suspect]
     Active Substance: BEVACIZUMAB
     Indication: GLIOBLASTOMA
     Route: 042
     Dates: start: 20120615, end: 20130909
  13. AVASTIN [Suspect]
     Active Substance: BEVACIZUMAB
     Route: 042
     Dates: start: 20121009
  14. KEPPRA [Concomitant]
     Active Substance: LEVETIRACETAM
     Indication: SEIZURE
     Route: 048

REACTIONS (14)
  - Abasia [Unknown]
  - Platelet count decreased [Recovering/Resolving]
  - Weight decreased [Not Recovered/Not Resolved]
  - Eosinophil count decreased [Unknown]
  - Seizure [Unknown]
  - Cerebrovascular accident [Unknown]
  - Blood pressure diastolic decreased [Recovering/Resolving]
  - Red cell distribution width increased [Unknown]
  - Neutrophil count decreased [Unknown]
  - Drug dose omission [Unknown]
  - Neoplasm [Unknown]
  - Cerebrovascular accident [Unknown]
  - White blood cell count decreased [Unknown]
  - Mean cell haemoglobin concentration decreased [Recovered/Resolved]

NARRATIVE: CASE EVENT DATE: 20120704
